FAERS Safety Report 12556916 (Version 1)
Quarter: 2016Q3

REPORT INFORMATION
  Report Type: Report from Study
  Country: ES (occurrence: ES)
  Receive Date: 20160714
  Receipt Date: 20160714
  Transmission Date: 20161109
  Serious: Yes (Other)
  Sender: FDA-Public Use
  Company Number: ES-ABBVIE-16K-144-1671716-00

PATIENT
  Age: 54 Year
  Sex: Female

DRUGS (1)
  1. DUODOPA [Suspect]
     Active Substance: CARBIDOPA\LEVODOPA
     Indication: PARKINSON^S DISEASE
     Dosage: 16H/DAY
     Route: 050
     Dates: start: 20090504

REACTIONS (6)
  - Seizure [Recovered/Resolved]
  - Fall [Recovering/Resolving]
  - Device dislocation [Unknown]
  - Skin wound [Unknown]
  - Contusion [Unknown]
  - Chest pain [Unknown]

NARRATIVE: CASE EVENT DATE: 201606
